FAERS Safety Report 7506188-8 (Version None)
Quarter: 2011Q2

REPORT INFORMATION
  Report Type: 
  Country: None (occurrence: None)
  Receive Date: 20110526
  Receipt Date: 20110412
  Transmission Date: 20111010
  Serious: Yes (Other)
  Sender: FDA-Public Use
  Company Number: US-BAXTER-2010BH003374

PATIENT
  Age: 62 Year
  Sex: Male
  Weight: 91 kg

DRUGS (17)
  1. HEPARIN SODIUM INJECTION [Suspect]
     Route: 065
     Dates: start: 20071116, end: 20071101
  2. TISSUE PLASMINOGEN ACTIVATOR, RECOMBINATIVE [Concomitant]
     Indication: PRODUCT USED FOR UNKNOWN INDICATION
     Route: 065
  3. DIGOXIN [Concomitant]
     Indication: PRODUCT USED FOR UNKNOWN INDICATION
     Route: 065
  4. HEPARIN SODIUM INJECTION [Suspect]
     Indication: ARTERIAL BYPASS OPERATION
     Route: 065
     Dates: start: 20071115, end: 20071115
  5. HEPARIN SODIUM INJECTION [Suspect]
     Indication: THROMBOSIS
     Route: 065
     Dates: start: 20071115, end: 20071115
  6. CENTRUM SILVER [Concomitant]
     Indication: PRODUCT USED FOR UNKNOWN INDICATION
     Route: 048
  7. VIAGRA [Concomitant]
     Indication: PRODUCT USED FOR UNKNOWN INDICATION
     Route: 065
  8. HEPARIN SODIUM INJECTION [Suspect]
     Route: 065
     Dates: start: 20071116, end: 20071101
  9. LISINOPRIL [Concomitant]
     Indication: PRODUCT USED FOR UNKNOWN INDICATION
     Route: 048
  10. DOXAZOSIN MESYLATE [Concomitant]
     Indication: PRODUCT USED FOR UNKNOWN INDICATION
     Route: 065
  11. TARKA [Concomitant]
     Indication: PRODUCT USED FOR UNKNOWN INDICATION
     Route: 065
  12. ASPIRIN [Concomitant]
     Indication: PRODUCT USED FOR UNKNOWN INDICATION
     Route: 065
  13. HYDROCHLOROTHIAZIDE [Concomitant]
     Indication: PRODUCT USED FOR UNKNOWN INDICATION
     Route: 065
  14. PLAVIX [Concomitant]
     Indication: PRODUCT USED FOR UNKNOWN INDICATION
     Route: 048
  15. FISH OIL [Concomitant]
     Indication: PRODUCT USED FOR UNKNOWN INDICATION
     Route: 065
  16. LASIX [Concomitant]
     Indication: PRODUCT USED FOR UNKNOWN INDICATION
     Route: 042
  17. COREG [Concomitant]
     Indication: PRODUCT USED FOR UNKNOWN INDICATION
     Route: 065

REACTIONS (11)
  - ERYTHEMA [None]
  - VASCULAR GRAFT THROMBOSIS [None]
  - RHABDOMYOLYSIS [None]
  - ACUTE MYOCARDIAL INFARCTION [None]
  - DEEP VEIN THROMBOSIS [None]
  - ESSENTIAL THROMBOCYTHAEMIA [None]
  - LOCALISED INFECTION [None]
  - SKIN ULCER [None]
  - OEDEMA PERIPHERAL [None]
  - THROMBOSIS [None]
  - ANAEMIA [None]
